FAERS Safety Report 17015531 (Version 1)
Quarter: 2019Q4

REPORT INFORMATION
  Report Type: Spontaneous
  Country: US (occurrence: US)
  Receive Date: 20191111
  Receipt Date: 20191111
  Transmission Date: 20200122
  Serious: Yes (Other)
  Sender: FDA-Public Use
  Company Number: US-ALVOGEN-2019-ALVOGEN-101790

PATIENT
  Age: 56 Year
  Sex: Female

DRUGS (5)
  1. PREDNISONE. [Suspect]
     Active Substance: PREDNISONE
     Indication: LYMPHOPLASMACYTOID LYMPHOMA/IMMUNOCYTOMA STAGE IV
     Dosage: 4 CYCLES
  2. RITUXIMAB. [Suspect]
     Active Substance: RITUXIMAB
     Indication: LYMPHOPLASMACYTOID LYMPHOMA/IMMUNOCYTOMA STAGE IV
     Dosage: 4 CYCLES
  3. CYCLOPHOSPHAMIDE. [Suspect]
     Active Substance: CYCLOPHOSPHAMIDE
     Indication: LYMPHOPLASMACYTOID LYMPHOMA/IMMUNOCYTOMA STAGE IV
     Dosage: 4 CYCLES
  4. VINCRISTINE [Suspect]
     Active Substance: VINCRISTINE
     Indication: LYMPHOPLASMACYTOID LYMPHOMA/IMMUNOCYTOMA STAGE IV
     Dosage: 4 CYCLES
  5. DOXORUBICIN [Suspect]
     Active Substance: DOXORUBICIN
     Indication: LYMPHOPLASMACYTOID LYMPHOMA/IMMUNOCYTOMA STAGE IV
     Dosage: 4 CYCLES

REACTIONS (2)
  - Hyperviscosity syndrome [Not Recovered/Not Resolved]
  - Treatment failure [Unknown]
